FAERS Safety Report 6547394-9 (Version None)
Quarter: 2010Q1

REPORT INFORMATION
  Report Type: 
  Country: None (occurrence: None)
  Receive Date: 20100122
  Receipt Date: 20100113
  Transmission Date: 20100710
  Serious: Yes (Other)
  Sender: FDA-Public Use
  Company Number: PHHY2009CA23485

PATIENT
  Sex: Female

DRUGS (2)
  1. SANDOSTATIN LAR [Suspect]
     Indication: NEUROENDOCRINE CARCINOMA
     Dosage: 40 MG, EVERY 3 WEEKS
     Route: 030
     Dates: start: 20060911
  2. SANDOSTATIN LAR [Suspect]
     Dosage: 30 MG EVERY 2 WEEKS
     Route: 030
     Dates: start: 20060911

REACTIONS (3)
  - DIARRHOEA [None]
  - HAEMORRHOIDS [None]
  - OEDEMA PERIPHERAL [None]
